FAERS Safety Report 25363729 (Version 1)
Quarter: 2025Q2

REPORT INFORMATION
  Report Type: Report from Study
  Country: US (occurrence: US)
  Receive Date: 20250527
  Receipt Date: 20250527
  Transmission Date: 20250716
  Serious: Yes (Other)
  Sender: BAYER HEALTHCARE PHARMACEUTICALS INC.
  Company Number: US-BAYER-2025A069870

PATIENT
  Age: 84 Year
  Sex: Male

DRUGS (23)
  1. NUBEQA [Suspect]
     Active Substance: DAROLUTAMIDE
     Indication: Prostate cancer
     Dosage: 600 MG, BID
     Route: 048
     Dates: start: 20250512
  2. AMLODIPINE [Concomitant]
     Active Substance: AMLODIPINE BESYLATE
  3. ATORVASTATIN [Concomitant]
     Active Substance: ATORVASTATIN
  4. BREO ELLIPTA [Concomitant]
     Active Substance: FLUTICASONE FUROATE\VILANTEROL TRIFENATATE
  5. CALCIUM [Concomitant]
     Active Substance: CALCIUM
  6. CIALIS [Concomitant]
     Active Substance: TADALAFIL
  7. COENZYME Q10 [Concomitant]
     Active Substance: DIETARY SUPPLEMENT\UBIDECARENONE
  8. DOCUSATE [Concomitant]
     Active Substance: DOCUSATE
  9. FLONASE [Concomitant]
     Active Substance: FLUTICASONE PROPIONATE
  10. GLUCOSAMINE [Concomitant]
     Active Substance: GLUCOSAMINE
  11. LIDOCAINE [Concomitant]
     Active Substance: LIDOCAINE
  12. LOVAZA [Concomitant]
     Active Substance: OMEGA-3-ACID ETHYL ESTERS
  13. MEGESTROL [Concomitant]
     Active Substance: MEGESTROL
  14. METAMUCIL [Concomitant]
     Active Substance: PLANTAGO SEED
  15. METOPROLOL [Concomitant]
     Active Substance: METOPROLOL
  16. MULTAQ [Concomitant]
     Active Substance: DRONEDARONE
  17. MYRBETRIQ [Concomitant]
     Active Substance: MIRABEGRON
  18. ORGOVYX [Concomitant]
     Active Substance: RELUGOLIX
  19. PEPCID [Concomitant]
     Active Substance: FAMOTIDINE
  20. PERIDEX [Concomitant]
     Active Substance: CHLORHEXIDINE GLUCONATE
  21. RAMIPRIL [Concomitant]
     Active Substance: RAMIPRIL
  22. XARELTO [Concomitant]
     Active Substance: RIVAROXABAN
  23. ZYRTEC [Concomitant]
     Active Substance: CETIRIZINE HYDROCHLORIDE

REACTIONS (1)
  - Arrhythmia [Not Recovered/Not Resolved]

NARRATIVE: CASE EVENT DATE: 20250517
